FAERS Safety Report 18888802 (Version 3)
Quarter: 2021Q1

REPORT INFORMATION
  Report Type: Spontaneous
  Country: US (occurrence: US)
  Receive Date: 20210213
  Receipt Date: 20210326
  Transmission Date: 20210420
  Serious: Yes (Hospitalization, Other)
  Sender: FDA-Public Use
  Company Number: US-BEH-2021128001

PATIENT
  Age: 45 Year
  Sex: Female

DRUGS (13)
  1. ACETAMINOPHEN. [Concomitant]
     Active Substance: ACETAMINOPHEN
     Indication: PAIN
     Dosage: 650 MILLIGRAM, Q4H, PRN
     Route: 048
     Dates: start: 20200108
  2. LACTULOSE. [Concomitant]
     Active Substance: LACTULOSE
     Indication: CONSTIPATION
     Dosage: 15?30 ML BID PRN
     Route: 048
  3. TRAMADOL. [Concomitant]
     Active Substance: TRAMADOL
     Indication: PAIN
     Dosage: 50 MILLIGRAM, Q4H, PRN
     Route: 048
     Dates: start: 20200504
  4. ALBUTEROL HFA [Concomitant]
     Active Substance: ALBUTEROL SULFATE
     Indication: WHEEZING
     Dosage: 1 PUFF EVERY 6 HOURS PRN
     Dates: start: 20201013
  5. CALCIUM CARBONATE. [Concomitant]
     Active Substance: CALCIUM CARBONATE
     Indication: DYSPEPSIA
     Dosage: 750 MILLIGRAM, TID PRN
     Route: 048
     Dates: start: 20201207
  6. DEXAMETHASONE. [Concomitant]
     Active Substance: DEXAMETHASONE
     Dosage: 4 MILLIGRAM, BID
     Route: 048
     Dates: start: 20201228
  7. ALBUTEROL HFA [Concomitant]
     Active Substance: ALBUTEROL SULFATE
     Indication: COUGH
  8. ONDANSETRON [Concomitant]
     Active Substance: ONDANSETRON
     Indication: NAUSEA
     Dosage: 8 MILLIGRAM, TID PRN
     Route: 048
     Dates: start: 20201013
  9. ALBURX [Suspect]
     Active Substance: ALBUMIN HUMAN
     Indication: MALIGNANT ASCITES
     Dosage: 100 MILLILITER, QW PRN
     Route: 042
     Dates: start: 20201218, end: 20210202
  10. LIDOCAINE/PRILOCAINE [Concomitant]
     Active Substance: LIDOCAINE\PRILOCAINE
     Dosage: 1 DOSAGE FORM
     Route: 061
     Dates: start: 20200928
  11. METOCLOPRAMIDE. [Concomitant]
     Active Substance: METOCLOPRAMIDE
     Dosage: 10 MILLIGRAM, TID
     Route: 048
  12. RIVAROXABAN [Concomitant]
     Active Substance: RIVAROXABAN
     Dosage: 20 MILLIGRAM, START TAKING AFTER XARELTO, 15 MG BID FOR 21 DAYS
     Route: 048
     Dates: start: 20200707, end: 20210203
  13. TRIAMCINOLONE [Concomitant]
     Active Substance: TRIAMCINOLONE
     Indication: HYPERSENSITIVITY
     Dosage: 2 SPRAY QD PRN
     Route: 045
     Dates: start: 20161208

REACTIONS (11)
  - Back pain [Recovered/Resolved]
  - Product contamination [Recovered/Resolved]
  - Transfusion reaction [Recovered/Resolved]
  - Chills [Recovered/Resolved]
  - Unresponsive to stimuli [Recovered/Resolved]
  - Urinary tract infection bacterial [Recovered/Resolved]
  - Anaphylactoid reaction [Recovered/Resolved]
  - Tachycardia [Recovered/Resolved]
  - Citrobacter sepsis [Recovered/Resolved]
  - Dyspnoea [Recovered/Resolved]
  - Chest pain [Recovered/Resolved]

NARRATIVE: CASE EVENT DATE: 20210202
